FAERS Safety Report 11713444 (Version 1)
Quarter: 2015Q4

REPORT INFORMATION
  Report Type: Spontaneous
  Country: US (occurrence: None)
  Receive Date: 20151106
  Receipt Date: 20151106
  Transmission Date: 20160304
  Serious: Yes (Life-Threatening, Hospitalization)
  Sender: FDA-Public Use
  Company Number: None

PATIENT
  Age: 8 Year
  Sex: Male
  Weight: 55 kg

DRUGS (5)
  1. FERROUS SULFATE [Concomitant]
     Active Substance: FERROUS SULFATE\FERROUS SULFATE, DRIED
  2. RECOTHROM [Suspect]
     Active Substance: SODIUM CHLORIDE\THROMBIN ALFA
     Indication: EPISTAXIS
     Dosage: 5000 UNITS
     Route: 061
     Dates: start: 20151014, end: 20151014
  3. AMICAR [Concomitant]
     Active Substance: AMINOCAPROIC ACID
  4. WILATE [Concomitant]
     Active Substance: HUMAN COAGULATION FACTOR VIII/VON WILLEBRAND FACTOR COMPLEX
  5. OCEAN SALINE NASAL SPRAY [Concomitant]
     Active Substance: SODIUM CHLORIDE

REACTIONS (4)
  - Cardio-respiratory arrest [None]
  - Unresponsive to stimuli [None]
  - Epistaxis [None]
  - Wrong drug administered [None]

NARRATIVE: CASE EVENT DATE: 20151014
